FAERS Safety Report 23855852 (Version 1)
Quarter: 2024Q2

REPORT INFORMATION
  Report Type: Spontaneous
  Country: US (occurrence: US)
  Receive Date: 20240515
  Receipt Date: 20240515
  Transmission Date: 20240716
  Serious: No
  Sender: FDA-Public Use
  Company Number: US-CIPLA LTD.-2024US02166

PATIENT

DRUGS (3)
  1. ALBUTEROL [Suspect]
     Active Substance: ALBUTEROL
     Indication: Asthma
     Dosage: 180 MCG, PRN (2 PUFFS AS NEED) INHALATION (ORAL)
  2. ALBUTEROL [Suspect]
     Active Substance: ALBUTEROL
     Indication: Hypersensitivity
     Dosage: 180 MCG, PRN (2 PUFFS AS NEED) INHALATION (ORAL)
  3. LISINOPRIL [Concomitant]
     Active Substance: LISINOPRIL
     Indication: Hypertension
     Dosage: 5 OR 2.5MG, QD (ONCE A DAY)
     Route: 065
     Dates: start: 202311

REACTIONS (4)
  - Dyspnoea [Not Recovered/Not Resolved]
  - Drug ineffective [Unknown]
  - Product taste abnormal [Unknown]
  - Product quality issue [Unknown]

NARRATIVE: CASE EVENT DATE: 20240101
